FAERS Safety Report 6176003-6 (Version None)
Quarter: 2009Q2

REPORT INFORMATION
  Report Type: 
  Country: None (occurrence: None)
  Receive Date: 20090501
  Receipt Date: 20090428
  Transmission Date: 20091009
  Serious: Yes (Hospitalization)
  Sender: FDA-Public Use
  Company Number: JP-ROCHE-627402

PATIENT
  Sex: Male
  Weight: 56 kg

DRUGS (2)
  1. ROCEPHIN [Suspect]
     Indication: PANCREATITIS ACUTE
     Route: 041
     Dates: start: 20090310, end: 20090312
  2. TAKEPRON [Suspect]
     Indication: DRUG USE FOR UNKNOWN INDICATION
     Route: 065
     Dates: start: 20090210, end: 20090313

REACTIONS (1)
  - HEPATIC FUNCTION ABNORMAL [None]
